FAERS Safety Report 17330578 (Version 1)
Quarter: 2020Q1

REPORT INFORMATION
  Report Type: Report from Study
  Country: DE (occurrence: DE)
  Receive Date: 20200128
  Receipt Date: 20200128
  Transmission Date: 20200409
  Serious: Yes (Other)
  Sender: FDA-Public Use
  Company Number: DE-PFIZER INC-2020033822

PATIENT
  Sex: Male

DRUGS (1)
  1. SOMATROPIN. [Suspect]
     Active Substance: SOMATROPIN
     Indication: SMALL FOR DATES BABY
     Dosage: 0.04 MG/KG, 1X/DAY (0.038 MG/KG, ONCE DAILY)
     Route: 058
     Dates: start: 20101202

REACTIONS (10)
  - Headache [Recovered/Resolved]
  - Urinary retention [Recovered/Resolved]
  - Diabetes insipidus [Recovered/Resolved]
  - Enuresis [Not Recovered/Not Resolved]
  - Hyperuricaemia [Not Recovered/Not Resolved]
  - Ear pain [Recovered/Resolved]
  - Paronychia [Recovered/Resolved]
  - Scarlet fever [Recovered/Resolved]
  - Urinary tract infection [Not Recovered/Not Resolved]
  - Urine flow decreased [Not Recovered/Not Resolved]

NARRATIVE: CASE EVENT DATE: 201108
